FAERS Safety Report 11962648 (Version 1)
Quarter: 2016Q1

REPORT INFORMATION
  Report Type: Spontaneous
  Country: FR (occurrence: FR)
  Receive Date: 20160126
  Receipt Date: 20160126
  Transmission Date: 20160526
  Serious: Yes (Hospitalization)
  Sender: FDA-Public Use
  Company Number: FR-ROCHE-1700012

PATIENT
  Age: 63 Year
  Sex: Female

DRUGS (12)
  1. MABTHERA [Suspect]
     Active Substance: RITUXIMAB
     Dosage: CYCLE 2
     Route: 041
     Dates: start: 20150910
  2. MABTHERA [Suspect]
     Active Substance: RITUXIMAB
     Route: 041
     Dates: start: 201507
  3. FLUDARA [Suspect]
     Active Substance: FLUDARABINE PHOSPHATE
     Dosage: CYCLE 4: 6 TABLETS PER DAY FOR 5 DAYS
     Route: 048
     Dates: start: 20151008
  4. FLUDARA [Suspect]
     Active Substance: FLUDARABINE PHOSPHATE
     Indication: B-CELL LYMPHOMA
     Dosage: CYCLE 1; 6 TABLETS PER DAY FOR 5 DAYS
     Route: 048
     Dates: start: 20150715
  5. FLUDARA [Suspect]
     Active Substance: FLUDARABINE PHOSPHATE
     Dosage: CYCLE 5; 6 TABLETS PER DAY FOR 5 DAYS
     Route: 048
     Dates: start: 20151105, end: 20151105
  6. CORTANCYL [Concomitant]
     Active Substance: PREDNISONE
     Route: 065
     Dates: start: 20151215
  7. MABTHERA [Suspect]
     Active Substance: RITUXIMAB
     Indication: B-CELL LYMPHOMA
     Dosage: CYCLE 1
     Route: 041
     Dates: start: 20150813
  8. MABTHERA [Suspect]
     Active Substance: RITUXIMAB
     Dosage: CYCLE 4
     Route: 041
     Dates: start: 20151105
  9. MABTHERA [Suspect]
     Active Substance: RITUXIMAB
     Dosage: CYCLE 5
     Route: 041
     Dates: start: 20151203, end: 20151203
  10. MABTHERA [Suspect]
     Active Substance: RITUXIMAB
     Dosage: CYCLE 3
     Route: 041
     Dates: start: 20151008
  11. FLUDARA [Suspect]
     Active Substance: FLUDARABINE PHOSPHATE
     Dosage: CYCLE 2: 6 TABLETS PER DAY FOR 5 DAYS
     Route: 048
     Dates: start: 20150813
  12. FLUDARA [Suspect]
     Active Substance: FLUDARABINE PHOSPHATE
     Dosage: CYCLE 3: 6 TABLETS PER DAY FOR 5 DAYS
     Route: 048
     Dates: start: 20150910

REACTIONS (1)
  - Autoimmune haemolytic anaemia [Not Recovered/Not Resolved]

NARRATIVE: CASE EVENT DATE: 20151020
